FAERS Safety Report 8540593-6 (Version None)
Quarter: 2012Q3

REPORT INFORMATION
  Report Type: 
  Country: None (occurrence: None)
  Receive Date: 20120726
  Receipt Date: 20120723
  Transmission Date: 20120928
  Serious: Yes (Hospitalization, Other)
  Sender: FDA-Public Use
  Company Number: US-CELGENEUS-163-21880-12072595

PATIENT
  Sex: Female

DRUGS (3)
  1. REVLIMID [Suspect]
     Indication: MULTIPLE MYELOMA
     Dosage: 10 MILLIGRAM
     Route: 048
     Dates: start: 20120529
  2. LAMOTRIGINE [Concomitant]
     Dosage: 25 MILLIGRAM
     Route: 048
  3. COUMADIN [Concomitant]
     Dosage: 5 MILLIGRAM
     Route: 048

REACTIONS (1)
  - CONVULSION [None]
